FAERS Safety Report 5832613-4 (Version None)
Quarter: 2008Q3

REPORT INFORMATION
  Report Type: 
  Country: None (occurrence: None)
  Receive Date: 20080804
  Receipt Date: 20080724
  Transmission Date: 20090109
  Serious: Yes (Hospitalization)
  Sender: FDA-Public Use
  Company Number: PHHY2008GB16215

PATIENT
  Age: 52 Year
  Sex: Male

DRUGS (2)
  1. CLOZARIL [Suspect]
     Indication: SCHIZOPHRENIA
     Dosage: UNK
     Dates: start: 19950712
  2. DEXAMETHASONE [Concomitant]

REACTIONS (3)
  - BRAIN NEOPLASM [None]
  - FEELING ABNORMAL [None]
  - LUNG NEOPLASM [None]
